FAERS Safety Report 13895981 (Version 1)
Quarter: 2017Q3

REPORT INFORMATION
  Report Type: Spontaneous
  Country: NL (occurrence: NL)
  Receive Date: 20170823
  Receipt Date: 20170823
  Transmission Date: 20171127
  Serious: Yes (Other)
  Sender: FDA-Public Use
  Company Number: NL-AUROBINDO-AUR-APL-2017-37425

PATIENT
  Age: 47 Year
  Sex: Male

DRUGS (4)
  1. TRUVADA [Concomitant]
     Active Substance: EMTRICITABINE\TENOFOVIR DISOPROXIL FUMARATE
     Indication: PRODUCT USED FOR UNKNOWN INDICATION
     Dosage: 1 TABLET/DAY
     Route: 065
     Dates: start: 2005
  2. VALACYCLOVIR [Concomitant]
     Active Substance: VALACYCLOVIR HYDROCHLORIDE
     Indication: SYPHILIS
     Dosage: UNK
     Dates: start: 2005
  3. TRAMADOL HCL [Suspect]
     Active Substance: TRAMADOL HYDROCHLORIDE
     Indication: BACK PAIN
     Dosage: 1 DF, AS NECESSARY
     Route: 065
     Dates: start: 201607
  4. KALETRA [Concomitant]
     Active Substance: LOPINAVIR\RITONAVIR
     Indication: PRODUCT USED FOR UNKNOWN INDICATION
     Dosage: 2 TABLETS/DAY
     Route: 065
     Dates: start: 2005

REACTIONS (3)
  - Loss of personal independence in daily activities [None]
  - Drug dependence [Not Recovered/Not Resolved]
  - Euphoric mood [Not Recovered/Not Resolved]
